FAERS Safety Report 8758856 (Version 2)
Quarter: 2012Q4

REPORT INFORMATION
  Report Type: 
  Country: JP (occurrence: JP)
  Receive Date: 20120829
  Receipt Date: 20120927
  Transmission Date: 20130627
  Serious: No
  Sender: FDA-Public Use
  Company Number: PHHY2012JP074050

PATIENT
  Age: 80 Year
  Sex: Male

DRUGS (2)
  1. AFINITOR [Suspect]
     Indication: RENAL CANCER
     Dosage: 5 mg, once every 2 days
     Route: 048
     Dates: start: 20120521, end: 20120824
  2. AFINITOR [Suspect]
     Dosage: 5 mg, daily from Monday to Friday

REACTIONS (2)
  - Neoplasm progression [Not Recovered/Not Resolved]
  - Malignant neoplasm progression [Not Recovered/Not Resolved]
